FAERS Safety Report 24570744 (Version 2)
Quarter: 2024Q4

REPORT INFORMATION
  Report Type: Spontaneous
  Country: BR (occurrence: BR)
  Receive Date: 20241101
  Receipt Date: 20241114
  Transmission Date: 20250114
  Serious: Yes (Other)
  Sender: AMGEN
  Company Number: BR-PFIZER INC-202400285131

PATIENT
  Age: 44 Year
  Sex: Female

DRUGS (1)
  1. ENBREL [Suspect]
     Active Substance: ETANERCEPT
     Indication: Product used for unknown indication
     Dosage: UNK
     Route: 065
     Dates: start: 2015

REACTIONS (11)
  - Hypersensitivity [Unknown]
  - Pruritus [Unknown]
  - Hypersensitivity [Unknown]
  - Injection site mass [Unknown]
  - Injection site erythema [Unknown]
  - Injection site pain [Unknown]
  - Rash vesicular [Unknown]
  - Peripheral swelling [Unknown]
  - Eye swelling [Unknown]
  - Swelling face [Unknown]
  - Product container issue [Unknown]
